FAERS Safety Report 6265251-2 (Version None)
Quarter: 2009Q3

REPORT INFORMATION
  Report Type: 
  Country: None (occurrence: None)
  Receive Date: 20090713
  Receipt Date: 20090707
  Transmission Date: 20100115
  Serious: Yes (Life-Threatening)
  Sender: FDA-Public Use
  Company Number: PHHO2009IT07617

PATIENT
  Sex: Female

DRUGS (3)
  1. AMN107 AMN+CAP [Suspect]
     Indication: CHRONIC MYELOID LEUKAEMIA
     Dosage: 200 MG, UNK
     Route: 048
     Dates: start: 20090324, end: 20090524
  2. METFORMIN HCL [Concomitant]
     Indication: DIABETES MELLITUS
     Dosage: UNK
     Dates: start: 19990101, end: 20090524
  3. VALSARTAN [Concomitant]
     Indication: HYPERTENSION
     Dosage: UNK
     Dates: start: 19990101, end: 20090524

REACTIONS (11)
  - ABDOMINAL PAIN UPPER [None]
  - AGITATION [None]
  - ANURIA [None]
  - BLOOD CREATININE INCREASED [None]
  - BLOOD LACTIC ACID INCREASED [None]
  - HAEMODIALYSIS [None]
  - METABOLIC ACIDOSIS [None]
  - OLIGURIA [None]
  - RENAL FAILURE ACUTE [None]
  - TACHYPNOEA [None]
  - VOMITING [None]
